FAERS Safety Report 16134619 (Version 3)
Quarter: 2019Q2

REPORT INFORMATION
  Report Type: Report from Study
  Country: US (occurrence: US)
  Receive Date: 20190329
  Receipt Date: 20190415
  Transmission Date: 20190711
  Serious: Yes (Hospitalization, Other)
  Sender: FDA-Public Use
  Company Number: US-JNJFOC-20190340264

PATIENT
  Sex: Male

DRUGS (1)
  1. IMBRUVICA [Suspect]
     Active Substance: IBRUTINIB
     Indication: CHRONIC LYMPHOCYTIC LEUKAEMIA
     Route: 048
     Dates: start: 20190308, end: 201903

REACTIONS (8)
  - Asthenia [Unknown]
  - Haemorrhage [Unknown]
  - Swollen tongue [Unknown]
  - Dementia [Unknown]
  - Dyspnoea [Unknown]
  - Cardiac dysfunction [Unknown]
  - Gait inability [Unknown]
  - Fall [Unknown]
